FAERS Safety Report 4297414-X (Version None)
Quarter: 2004Q1

REPORT INFORMATION
  Report Type: 
  Country: None (occurrence: None)
  Receive Date: 20040213
  Receipt Date: 20040205
  Transmission Date: 20041129
  Serious: Yes (Death, Hospitalization)
  Sender: FDA-Public Use
  Company Number: US065870

PATIENT
  Age: 59 Year

DRUGS (4)
  1. ENBREL [Suspect]
     Indication: RHEUMATOID ARTHRITIS
     Dosage: 25 MG, 2 IN 1 WEEK, SC
     Route: 058
     Dates: start: 19981201, end: 20010530
  2. METHOTREXATE [Concomitant]
  3. RISEDRONATE SODIUM [Concomitant]
  4. METOCLOPRAMIDE [Concomitant]

REACTIONS (7)
  - CHEST WALL PAIN [None]
  - DEEP VEIN THROMBOSIS [None]
  - LIVER ABSCESS [None]
  - PANCREATIC CARCINOMA [None]
  - POSTOPERATIVE ABSCESS [None]
  - PULMONARY EMBOLISM [None]
  - SPLENECTOMY [None]
